FAERS Safety Report 18362045 (Version 3)
Quarter: 2021Q2

REPORT INFORMATION
  Report Type: Other
  Country: US (occurrence: US)
  Receive Date: 20201008
  Receipt Date: 20210630
  Transmission Date: 20210717
  Serious: Yes (Other)
  Sender: FDA-Public Use
  Company Number: US-ROCHE-2152306

PATIENT
  Sex: Female

DRUGS (4)
  1. ZELBORAF [Suspect]
     Active Substance: VEMURAFENIB
     Indication: HISTIOCYTOSIS
     Route: 048
     Dates: start: 20170718
  2. ZELBORAF [Suspect]
     Active Substance: VEMURAFENIB
     Indication: THYROID FUNCTION TEST ABNORMAL
     Dosage: TAKE 2 TABLETS BY MOUTH TWICE A DAY
     Route: 048
  3. ZELBORAF [Suspect]
     Active Substance: VEMURAFENIB
     Indication: ESSENTIAL HYPERTENSION
  4. ZELBORAF [Suspect]
     Active Substance: VEMURAFENIB
     Indication: HYPERLIPIDAEMIA
     Dosage: TAKE 2 TABLETS BY MOUTH TWICE A DAY
     Route: 048

REACTIONS (4)
  - Visual impairment [Unknown]
  - Off label use [Unknown]
  - Deafness [Unknown]
  - Diabetes mellitus [Unknown]
